FAERS Safety Report 23211445 (Version 2)
Quarter: 2023Q4

REPORT INFORMATION
  Report Type: Spontaneous
  Country: US (occurrence: US)
  Receive Date: 20231121
  Receipt Date: 20231127
  Transmission Date: 20240110
  Serious: Yes (Other)
  Sender: FDA-Public Use
  Company Number: US-ABBVIE-5503890

PATIENT
  Sex: Male

DRUGS (1)
  1. CYCLOSPORINE [Suspect]
     Active Substance: CYCLOSPORINE
     Indication: Dry eye
     Route: 047
     Dates: start: 202310

REACTIONS (3)
  - Cataract [Unknown]
  - Therapeutic product effect decreased [Unknown]
  - Eye discharge [Unknown]

NARRATIVE: CASE EVENT DATE: 20230101
